FAERS Safety Report 25534298 (Version 1)
Quarter: 2025Q3

REPORT INFORMATION
  Report Type: Spontaneous
  Country: US (occurrence: None)
  Receive Date: 20250708
  Receipt Date: 20250708
  Transmission Date: 20251020
  Serious: Yes (Other)
  Sender: FDA-CTU
  Company Number: None

PATIENT
  Age: 7 Year
  Sex: Male
  Weight: 23.4 kg

DRUGS (3)
  1. DUAL ACTION PEPCID COMPLETE [Suspect]
     Active Substance: CALCIUM CARBONATE\FAMOTIDINE\MAGNESIUM HYDROXIDE
  2. Concerta 54mg Clonidine XR: Morning and Night Singular [Concomitant]
  3. Pepcid Complete twice a day [Concomitant]

REACTIONS (6)
  - Chronic respiratory disease [None]
  - Croup infectious [None]
  - Asthma [None]
  - Pneumonia [None]
  - Off label use [None]
  - Product administered to patient of inappropriate age [None]

NARRATIVE: CASE EVENT DATE: 20250202
